FAERS Safety Report 9865535 (Version 1)
Quarter: 2014Q1

REPORT INFORMATION
  Report Type: Spontaneous
  Country: US (occurrence: US)
  Receive Date: 20140203
  Receipt Date: 20140203
  Transmission Date: 20141002
  Serious: No
  Sender: FDA-Public Use
  Company Number: US-ALLERGAN-1309556US

PATIENT
  Age: 55 Year
  Sex: Male

DRUGS (6)
  1. RESTASIS [Suspect]
     Indication: DRY EYE
     Dosage: UNK, QHS
     Route: 047
     Dates: start: 201305
  2. SYSTANE [Concomitant]
     Indication: DRY EYE
     Dosage: 2 GTT, PRN
     Route: 047
     Dates: start: 201301
  3. METFORMIN [Concomitant]
     Indication: DIABETES MELLITUS
     Dosage: UNK
  4. METHOTREXATE [Concomitant]
     Indication: RHEUMATOID ARTHRITIS
     Dosage: UNK
  5. DAYPRO [Concomitant]
     Indication: RHEUMATOID ARTHRITIS
     Dosage: UNK
  6. LISINOPRIL [Concomitant]
     Indication: PROTEIN URINE PRESENT
     Dosage: UNK

REACTIONS (2)
  - Eye irritation [Recovered/Resolved]
  - Eye pruritus [Recovered/Resolved]
